FAERS Safety Report 14359478 (Version 2)
Quarter: 2018Q1

REPORT INFORMATION
  Report Type: Report from Study
  Country: CN (occurrence: CN)
  Receive Date: 20180105
  Receipt Date: 20180222
  Transmission Date: 20180509
  Serious: Yes (Hospitalization, Other)
  Sender: FDA-Public Use
  Company Number: CN-ALLERGAN-1800077US

PATIENT
  Age: 33 Year
  Sex: Female
  Weight: 42 kg

DRUGS (10)
  1. BLINDED CEFTAZIDIME;AVIBACTAM UNK [Suspect]
     Active Substance: AVIBACTAM SODIUM\CEFTAZIDIME
     Indication: PNEUMONIA
  2. ENTECAVIR. [Concomitant]
     Active Substance: ENTECAVIR
     Indication: HEPATITIS B
     Dosage: UNK
     Route: 065
     Dates: end: 20141229
  3. MONTELUKAST [Concomitant]
     Active Substance: MONTELUKAST SODIUM
     Indication: CHRONIC OBSTRUCTIVE PULMONARY DISEASE
     Dosage: UNK
     Route: 065
     Dates: start: 20141207, end: 20141229
  4. VORICONAZOLE. [Concomitant]
     Active Substance: VORICONAZOLE
     Indication: PNEUMONIA FUNGAL
     Dosage: UNK
     Route: 065
     Dates: start: 201412, end: 20141228
  5. BLINDED MEROPENEM [Suspect]
     Active Substance: MEROPENEM
     Indication: PNEUMONIA
     Dosage: 2000 MG AND 500 MG, 3 TIMES A DAY WITH AN INTRAVENOUS DRIP ROUTE OF ADMINISTRATION
     Route: 042
     Dates: start: 20141207, end: 20141221
  6. POTASSIUM [Concomitant]
     Active Substance: POTASSIUM
     Indication: BLOOD POTASSIUM DECREASED
     Dosage: UNK
     Route: 065
     Dates: start: 20141209
  7. VITAMIN C [Concomitant]
     Active Substance: ASCORBIC ACID
     Indication: CARDIAC DISORDER
     Dosage: UNK
     Route: 065
     Dates: start: 20141231
  8. BLINDED MEROPENEM [Suspect]
     Active Substance: MEROPENEM
     Indication: PNEUMONIA
  9. BLINDED CEFTAZIDIME;AVIBACTAM UNK [Suspect]
     Active Substance: AVIBACTAM SODIUM\CEFTAZIDIME
     Indication: PNEUMONIA
     Dosage: 2000 MG AND 500 MG, 3 TIMES A DAY WITH AN INTRAVENOUS DRIP ROUTE OF ADMINISTRATION
     Route: 042
     Dates: start: 20141207, end: 20141221
  10. DOXOFYLLINE [Concomitant]
     Active Substance: DOXOFYLLINE
     Indication: CHRONIC OBSTRUCTIVE PULMONARY DISEASE
     Dosage: UNK
     Route: 065
     Dates: start: 20141207, end: 20141229

REACTIONS (1)
  - Subacute hepatic failure [Recovered/Resolved]

NARRATIVE: CASE EVENT DATE: 20150108
